FAERS Safety Report 26106995 (Version 1)
Quarter: 2025Q4

REPORT INFORMATION
  Report Type: Spontaneous
  Country: EU (occurrence: EU)
  Receive Date: 20251201
  Receipt Date: 20251201
  Transmission Date: 20260117
  Serious: Yes (Hospitalization)
  Sender: CHEPLAPHARM
  Company Number: None

PATIENT
  Age: 25 Year
  Sex: Female
  Weight: 65 kg

DRUGS (12)
  1. QUETIAPINE [Suspect]
     Active Substance: QUETIAPINE
     Indication: Borderline personality disorder
     Dosage: 400 MG OF QUETIAPINE SR ONCE A DAY (NOT ADMINISTERED)?DAILY DOSE: 400 MILLIGRAM
     Route: 048
     Dates: start: 2024, end: 20251001
  2. QUETIAPINE [Suspect]
     Active Substance: QUETIAPINE
     Indication: Borderline personality disorder
     Route: 048
     Dates: start: 20250516
  3. QUETIAPINE [Suspect]
     Active Substance: QUETIAPINE
     Indication: Borderline personality disorder
     Dosage: 200 MG OF IMMEDIATE-RELEASE QUETIAPINE TWICE A DAY?DAILY DOSE: 400 MILLIGRAM
     Route: 048
     Dates: start: 20251002
  4. VALIUM [Suspect]
     Active Substance: DIAZEPAM
     Indication: Borderline personality disorder
     Dates: start: 20250516
  5. VALIUM [Suspect]
     Active Substance: DIAZEPAM
     Indication: Borderline personality disorder
     Dosage: 5 MG - 5 MG - 10 MG?DAILY DOSE: 20 MILLIGRAM
     Dates: end: 20250310
  6. VENLAFAXINE [Suspect]
     Active Substance: VENLAFAXINE HYDROCHLORIDE
     Dates: start: 20250516
  7. VENLAFAXINE [Suspect]
     Active Substance: VENLAFAXINE HYDROCHLORIDE
     Dosage: DAILY DOSE: 150 MILLIGRAM
  8. CYAMEMAZINE [Concomitant]
     Active Substance: CYAMEMAZINE
     Indication: Depression
     Dosage: 3 TIMES A DAY (AS NEEDED)?DAILY DOSE: 75 MILLIGRAM
  9. MIRTAZAPINE [Concomitant]
     Active Substance: MIRTAZAPINE
     Indication: Borderline personality disorder
     Dosage: DAILY DOSE: 30 MILLIGRAM
     Dates: start: 202503
  10. SERTRALINE [Concomitant]
     Active Substance: SERTRALINE HYDROCHLORIDE
     Indication: Borderline personality disorder
     Dosage: DAILY DOSE: 150 MILLIGRAM
  11. OLANZAPINE [Concomitant]
     Active Substance: OLANZAPINE
     Dosage: DAILY DOSE: 5 MILLIGRAM
     Dates: start: 20250310
  12. HYDROXYZINE [Concomitant]
     Active Substance: HYDROXYZINE HYDROCHLORIDE

REACTIONS (4)
  - Intentional overdose [Unknown]
  - Suicidal ideation [Unknown]
  - Product availability issue [Not Recovered/Not Resolved]
  - Off label use [Unknown]

NARRATIVE: CASE EVENT DATE: 20250516
